FAERS Safety Report 19378071 (Version 2)
Quarter: 2021Q2

REPORT INFORMATION
  Report Type: Spontaneous
  Country: IN (occurrence: IN)
  Receive Date: 20210604
  Receipt Date: 20210623
  Transmission Date: 20210717
  Serious: Yes (Other)
  Sender: FDA-Public Use
  Company Number: IN-BAXTER-2021BAX014956

PATIENT
  Age: 11 Month
  Sex: Male

DRUGS (2)
  1. DOXIL [Suspect]
     Active Substance: DOXORUBICIN HYDROCHLORIDE
     Indication: NEUROBLASTOMA
     Dosage: UNK ? STOPPED
     Route: 065
  2. CISPLATIN. [Suspect]
     Active Substance: CISPLATIN
     Indication: NEUROBLASTOMA
     Dosage: UNK ? STOPPED
     Route: 065

REACTIONS (4)
  - Hypoglycaemic seizure [Recovering/Resolving]
  - Shock [Recovering/Resolving]
  - Brain injury [Recovering/Resolving]
  - Device related sepsis [Recovering/Resolving]
